FAERS Safety Report 16793824 (Version 4)
Quarter: 2020Q1

REPORT INFORMATION
  Report Type: Report from Study
  Country: CN (occurrence: CN)
  Receive Date: 20190911
  Receipt Date: 20200311
  Transmission Date: 20200409
  Serious: Yes (Hospitalization)
  Sender: FDA-Public Use
  Company Number: CN-ROCHE-2397640

PATIENT
  Age: 53 Year
  Sex: Female
  Weight: 66 kg

DRUGS (32)
  1. ZOMETA [Concomitant]
     Active Substance: ZOLEDRONIC ACID
     Route: 065
     Dates: start: 20170927
  2. REDUCED GLUTATHIONE SODIUM [Concomitant]
     Active Substance: GLUTATHIONE
     Route: 065
     Dates: start: 20191122, end: 20191123
  3. REDUCED GLUTATHIONE SODIUM [Concomitant]
     Active Substance: GLUTATHIONE
     Route: 065
     Dates: start: 20191030, end: 20191030
  4. POTASSIUM CHLORIDE. [Concomitant]
     Active Substance: POTASSIUM CHLORIDE
     Route: 065
     Dates: start: 20190725, end: 20190731
  5. POLYENE PHOSPHATIDYLCHOLINE [Concomitant]
     Active Substance: PHOSPHOLIPID
     Route: 065
     Dates: start: 20180222
  6. REDUCED GLUTATHIONE SODIUM [Concomitant]
     Active Substance: GLUTATHIONE
     Indication: HEPATIC FUNCTION ABNORMAL
     Route: 065
     Dates: start: 20190716, end: 20190718
  7. REDUCED GLUTATHIONE SODIUM [Concomitant]
     Active Substance: GLUTATHIONE
     Route: 065
     Dates: start: 20200101, end: 20200102
  8. POLYENE PHOSPHATIDYLCHOLINE [Concomitant]
     Active Substance: PHOSPHOLIPID
     Route: 065
     Dates: start: 20190928, end: 20190928
  9. FUROSEMIDE. [Concomitant]
     Active Substance: FUROSEMIDE
     Route: 065
     Dates: start: 20190725, end: 20190731
  10. COMPOUND GLYCYRRHIZIN [CYSTEINE;GLYCINE;GLYCYRRHIZIC ACID] [Concomitant]
     Active Substance: CYSTEINE\GLYCINE\GLYCYRRHIZIN
     Route: 065
     Dates: start: 20190807, end: 20190807
  11. CEFUROXIME. [Concomitant]
     Active Substance: CEFUROXIME
     Route: 065
  12. POTASSIUM CHLORIDE. [Concomitant]
     Active Substance: POTASSIUM CHLORIDE
     Route: 065
  13. POLYENE PHOSPHATIDYLCHOLINE [Concomitant]
     Active Substance: PHOSPHOLIPID
     Indication: HEPATIC FUNCTION ABNORMAL
     Route: 065
     Dates: start: 20190708, end: 20190708
  14. TORASEMIDE [Concomitant]
     Active Substance: TORSEMIDE
     Route: 065
     Dates: start: 20190725, end: 20190731
  15. BICYCLOL [Concomitant]
     Active Substance: BICYCLOL
     Indication: HEPATIC FUNCTION ABNORMAL
     Route: 065
     Dates: start: 20180921
  16. COMPOUND GLYCYRRHIZIN [CYSTEINE;GLYCINE;GLYCYRRHIZIC ACID] [Concomitant]
     Active Substance: CYSTEINE\GLYCINE\GLYCYRRHIZIN
     Indication: HEPATIC FUNCTION ABNORMAL
     Route: 065
     Dates: start: 20190716, end: 20190718
  17. REDUCED GLUTATHIONE SODIUM [Concomitant]
     Active Substance: GLUTATHIONE
     Route: 065
     Dates: start: 20190807, end: 20190807
  18. SHENG XUE XIAO BAN JIAO NANG [Concomitant]
     Route: 065
     Dates: start: 20190807, end: 20190826
  19. COMPOUND GLYCYRRHIZIN [CYSTEINE;GLYCINE;GLYCYRRHIZIC ACID] [Concomitant]
     Active Substance: CYSTEINE\GLYCINE\GLYCYRRHIZIN
     Route: 065
     Dates: start: 20191009, end: 20191009
  20. COMPOUND GLYCYRRHIZIN [CYSTEINE;GLYCINE;GLYCYRRHIZIC ACID] [Concomitant]
     Active Substance: CYSTEINE\GLYCINE\GLYCYRRHIZIN
     Route: 065
     Dates: start: 20191212, end: 20191212
  21. COMPOUND GLYCYRRHIZIN [CYSTEINE;GLYCINE;GLYCYRRHIZIC ACID] [Concomitant]
     Active Substance: CYSTEINE\GLYCINE\GLYCYRRHIZIN
     Route: 065
     Dates: start: 20200101, end: 20200102
  22. COMPOUND GLYCYRRHIZIN [CYSTEINE;GLYCINE;GLYCYRRHIZIC ACID] [Concomitant]
     Active Substance: CYSTEINE\GLYCINE\GLYCYRRHIZIN
     Route: 065
     Dates: start: 20191030, end: 20191030
  23. REDUCED GLUTATHIONE SODIUM [Concomitant]
     Active Substance: GLUTATHIONE
     Route: 065
     Dates: start: 20191009, end: 20191009
  24. REDUCED GLUTATHIONE SODIUM [Concomitant]
     Active Substance: GLUTATHIONE
     Route: 065
     Dates: start: 20191212, end: 20191212
  25. CALCIUM CARBONATE;COLECALCIFEROL [Concomitant]
     Active Substance: CALCIUM CARBONATE\CHOLECALCIFEROL
     Route: 065
     Dates: start: 20190601
  26. REDUCED GLUTATHIONE SODIUM [Concomitant]
     Active Substance: GLUTATHIONE
     Route: 065
     Dates: start: 20190918, end: 20190918
  27. DIGOXIN. [Concomitant]
     Active Substance: DIGOXIN
     Route: 065
     Dates: start: 20190725, end: 20190731
  28. TRASTUZUMAB EMTANSINE [Suspect]
     Active Substance: ADO-TRASTUZUMAB EMTANSINE
     Indication: BREAST CANCER METASTATIC
     Dosage: DATE OF MOST RECENT DOSE OF TRASTUZUMAB EMTANSINE ADMINISTERED PRIOR TO ONSET OF PULMONARY ARTERIAL
     Route: 042
     Dates: start: 20171019
  29. COMPOUND GLYCYRRHIZIN [CYSTEINE;GLYCINE;GLYCYRRHIZIC ACID] [Concomitant]
     Active Substance: CYSTEINE\GLYCINE\GLYCYRRHIZIN
     Route: 065
     Dates: start: 20190918, end: 20190918
  30. COMPOUND GLYCYRRHIZIN [CYSTEINE;GLYCINE;GLYCYRRHIZIC ACID] [Concomitant]
     Active Substance: CYSTEINE\GLYCINE\GLYCYRRHIZIN
     Route: 065
     Dates: start: 20191122, end: 20191123
  31. SHENG XUE XIAO BAN JIAO NANG [Concomitant]
     Route: 065
     Dates: start: 20190718, end: 20190806
  32. SHENG XUE XIAO BAN JIAO NANG [Concomitant]
     Route: 065
     Dates: start: 20190827

REACTIONS (1)
  - Pulmonary arterial hypertension [Recovering/Resolving]

NARRATIVE: CASE EVENT DATE: 20190712
